FAERS Safety Report 16173385 (Version 1)
Quarter: 2019Q2

REPORT INFORMATION
  Report Type: Spontaneous
  Country: US (occurrence: US)
  Receive Date: 20190408
  Receipt Date: 20190408
  Transmission Date: 20190711
  Serious: No
  Sender: FDA-Public Use
  Company Number: None

PATIENT
  Age: 57 Year
  Sex: Female
  Weight: 59.4 kg

DRUGS (1)
  1. RHOPRESSA [Suspect]
     Active Substance: NETARSUDIL MESYLATE
     Indication: CORNEAL DYSTROPHY
     Route: 047
     Dates: start: 20180825

REACTIONS (1)
  - Conjunctival haemorrhage [None]

NARRATIVE: CASE EVENT DATE: 20180915
